FAERS Safety Report 4759350-1 (Version None)
Quarter: 2005Q3

REPORT INFORMATION
  Report Type: 
  Country: None (occurrence: None)
  Receive Date: 20050831
  Receipt Date: 20050819
  Transmission Date: 20060218
  Serious: Yes (Other)
  Sender: FDA-Public Use
  Company Number: 2005118324

PATIENT
  Age: 63 Year
  Sex: Female
  Weight: 99 kg

DRUGS (6)
  1. SOMAVERT [Suspect]
     Indication: ACROMEGALY
     Dosage: 15 MG (15 MG, 1 IN 1 D), SUBCUTANEOUS
     Route: 058
     Dates: start: 20050722
  2. PLAVIX [Suspect]
     Indication: ANGIOPATHY
     Dosage: 75 MG (75 MG, 1 IN 1 D), ORAL
     Route: 048
     Dates: start: 20040901
  3. AMLODIPINE [Suspect]
     Indication: HYPERTENSION
     Dosage: 5 MG (1 IN 1 D), ORAL
     Route: 048
  4. PANTOPRAZOLE SODIUM [Suspect]
     Indication: HYPERCHLORHYDRIA
     Dosage: 20 MG (1 IN 1 D)
  5. INSULIN [Suspect]
     Indication: DIABETES MELLITUS NON-INSULIN-DEPENDENT
     Dosage: 75 UNITS (28 UNITS MORNING; 20 MIDDAY; 24 EVENING)
  6. COSAAR PLUS (HYDROCHLOROTHIAZIDE, LOSARTAN POTASSIUM) [Suspect]
     Indication: HYPERTENSION
     Dosage: 50 MG (50 MG, 1 IN 1 D), ORAL
     Route: 048

REACTIONS (1)
  - VITREOUS HAEMORRHAGE [None]
